FAERS Safety Report 7660219-3 (Version None)
Quarter: 2011Q3

REPORT INFORMATION
  Report Type: 
  Country: None (occurrence: None)
  Receive Date: 20110805
  Receipt Date: 20110801
  Transmission Date: 20111222
  Serious: Yes (Hospitalization, Other)
  Sender: FDA-Public Use
  Company Number: PHHO2011IN13086

PATIENT
  Sex: Female
  Weight: 53 kg

DRUGS (10)
  1. METOPROLOL TARTRATE [Concomitant]
     Dosage: 25 MG, QD
     Dates: start: 20110201
  2. LASIX [Concomitant]
     Indication: DIURETIC THERAPY
     Dosage: 40 MG, QD
     Dates: start: 20110112, end: 20110801
  3. BLINDED LCZ696 [Suspect]
     Indication: CARDIAC FAILURE CHRONIC
     Dosage: CODE NOT BROKEN
     Dates: start: 20110216
  4. VALSARTAN [Suspect]
     Indication: CARDIAC FAILURE CHRONIC
     Dosage: CODE NOT BROKEN
     Dates: start: 20110216
  5. ECOSPRIN [Concomitant]
     Dosage: 75 MG, QD
     Dates: start: 20110118, end: 20110802
  6. DEPLATT-A [Concomitant]
     Indication: ANTICOAGULANT THERAPY
     Dosage: 75 MG, QD
     Dates: start: 20110118
  7. GLIMEPIRIDE W/METFORMIN [Concomitant]
     Indication: DIABETES MELLITUS
     Dosage: BID
     Dates: start: 20110118
  8. ARKAMIN [Concomitant]
     Indication: HYPERTENSION
     Dosage: 100 UG, QD
     Dates: start: 20110118
  9. BLINDED NO TREATMENT RECEIVED [Suspect]
     Indication: CARDIAC FAILURE CHRONIC
     Dosage: CODE NOT BROKEN
     Dates: start: 20110216
  10. SIMVASTATIN [Concomitant]
     Indication: DYSLIPIDAEMIA
     Dosage: 5 MG, QD
     Dates: start: 20010218

REACTIONS (2)
  - MUSCULAR WEAKNESS [None]
  - CHEST PAIN [None]
